FAERS Safety Report 4504354-7 (Version None)
Quarter: 2004Q4

REPORT INFORMATION
  Report Type: 
  Country: None (occurrence: None)
  Receive Date: 20041115
  Receipt Date: 20041102
  Transmission Date: 20050328
  Serious: Yes (Other)
  Sender: FDA-Public Use
  Company Number: 2004086847

PATIENT
  Sex: Female
  Weight: 54.4316 kg

DRUGS (8)
  1. NEURONTIN [Suspect]
     Indication: MIGRAINE
     Dosage: 100 MG (100 MG, 1 IN 1 D), ORAL
     Route: 048
     Dates: start: 20000101, end: 20020101
  2. ZOLMITRIPTAN (ZOLMITRIPTAN) [Concomitant]
  3. SUMATRIPTAN SUCCINATE [Concomitant]
  4. AXOTAL (OLD FORM) (BUTALBITAL, CAFFEINE, PARACETAMOL) [Concomitant]
  5. VICODIN [Concomitant]
  6. ALPRAZOLAM [Concomitant]
  7. PAROXETINE HCL [Concomitant]
  8. PROMETHAZINE [Concomitant]

REACTIONS (18)
  - ABASIA [None]
  - ANURIA [None]
  - BLOOD PRESSURE INCREASED [None]
  - CONFUSIONAL STATE [None]
  - DEPRESSION [None]
  - DIVERTICULITIS [None]
  - DYSARTHRIA [None]
  - FEELING ABNORMAL [None]
  - METRORRHAGIA [None]
  - NERVOUS SYSTEM DISORDER [None]
  - OEDEMA PERIPHERAL [None]
  - OVERDOSE [None]
  - PAIN IN EXTREMITY [None]
  - SUICIDAL IDEATION [None]
  - UTERINE LEIOMYOMA [None]
  - VAGINAL DISORDER [None]
  - VISION BLURRED [None]
  - WHITE BLOOD CELL COUNT INCREASED [None]
